FAERS Safety Report 9965068 (Version 1)
Quarter: 2014Q1

REPORT INFORMATION
  Report Type: Report from Study
  Country: US (occurrence: US)
  Receive Date: 20140305
  Receipt Date: 20140305
  Transmission Date: 20141002
  Serious: No
  Sender: FDA-Public Use
  Company Number: US-ABBVIE-13P-163-1124170-00

PATIENT
  Age: 72 Year
  Sex: Female

DRUGS (13)
  1. HUMIRA [Suspect]
     Indication: CROHN^S DISEASE
     Dates: start: 20130620
  2. HUMIRA [Suspect]
     Dates: start: 20130704
  3. HUMIRA [Suspect]
     Dates: start: 20130718
  4. AMITRIPTYLINE [Concomitant]
     Indication: ARTHRALGIA
     Dosage: 50 MG AT NIGHT
  5. LOW DOSE ASPIRIN [Concomitant]
     Indication: THROMBOSIS
  6. BUDESONIDE [Concomitant]
     Indication: CROHN^S DISEASE
  7. CALCIUM CITRATE [Concomitant]
     Indication: PRODUCT USED FOR UNKNOWN INDICATION
  8. VITAMIN D3 [Concomitant]
     Indication: PRODUCT USED FOR UNKNOWN INDICATION
  9. IRON [Concomitant]
     Indication: BONE DISORDER
     Dosage: 65 MG DAILY
  10. FISH OIL/ OMEGA 3 FATTY ACIDS [Concomitant]
     Indication: MIGRAINE
  11. DICYCLOMINE [Concomitant]
     Indication: ABDOMINAL PAIN
     Dosage: 10 MG CAPSULES, 2-3 CAPSULES THREE TIMES A DAY
  12. DICYCLOMINE [Concomitant]
     Indication: CROHN^S DISEASE
  13. CELEXA [Concomitant]
     Indication: DEPRESSION
     Dosage: 1.5 TABLETS DAILY

REACTIONS (1)
  - Contusion [Not Recovered/Not Resolved]
